FAERS Safety Report 5307343-8 (Version None)
Quarter: 2007Q2

REPORT INFORMATION
  Report Type: 
  Country: None (occurrence: None)
  Receive Date: 20070425
  Receipt Date: 20070316
  Transmission Date: 20071010
  Serious: Yes (Hospitalization)
  Sender: FDA-Public Use
  Company Number: US-MERCK-0703USA04672

PATIENT
  Age: 53 Year
  Sex: Male

DRUGS (15)
  1. HYZAAR [Suspect]
     Indication: HYPERTENSION
     Route: 048
     Dates: end: 20040401
  2. HYZAAR [Suspect]
     Route: 048
  3. ASPIRIN [Concomitant]
     Route: 065
  4. NEXIUM [Concomitant]
     Route: 048
  5. PLAVIX [Concomitant]
     Route: 048
  6. NEURONTIN [Concomitant]
     Route: 048
  7. VICODIN [Concomitant]
     Route: 048
  8. KLONOPIN [Concomitant]
     Route: 048
  9. HUMULIN 70/30 [Concomitant]
     Route: 065
  10. HUMULIN 70/30 [Concomitant]
     Route: 065
  11. HUMULIN N [Concomitant]
     Route: 065
  12. HUMULIN N [Concomitant]
     Route: 065
  13. COREG [Concomitant]
     Route: 048
  14. TRICOR [Concomitant]
     Route: 048
  15. CATAPRES [Concomitant]
     Route: 065

REACTIONS (5)
  - BLOOD POTASSIUM INCREASED [None]
  - DRUG ABUSER [None]
  - DRUG DETOXIFICATION [None]
  - NASOPHARYNGITIS [None]
  - WHITE BLOOD CELL COUNT INCREASED [None]
